FAERS Safety Report 21650996 (Version 1)
Quarter: 2022Q4

REPORT INFORMATION
  Report Type: Spontaneous
  Country: DE (occurrence: DE)
  Receive Date: 20221128
  Receipt Date: 20221128
  Transmission Date: 20230113
  Serious: Yes (Hospitalization, Other)
  Sender: FDA-Public Use
  Company Number: None

PATIENT
  Age: 91 Year
  Sex: Female

DRUGS (3)
  1. APIXABAN [Suspect]
     Active Substance: APIXABAN
     Indication: Product used for unknown indication
     Dosage: 2.5 MG, 1-0-1-0
  2. Tavor [Concomitant]
     Dosage: STRENGTH: 1 MG, EXPIDET, AS REQUIRED
  3. DULCOLAX NOS [Concomitant]
     Active Substance: BISACODYL OR DOCUSATE SODIUM
     Dosage: 10 MG, AS REQUIRED

REACTIONS (12)
  - Renal impairment [Unknown]
  - Memory impairment [Unknown]
  - Duodenal ulcer [Unknown]
  - Tachycardia [Unknown]
  - Gastrointestinal haemorrhage [Unknown]
  - Electrolyte imbalance [Unknown]
  - Haematemesis [Unknown]
  - Anaemia [Unknown]
  - Tachypnoea [Unknown]
  - Disorientation [Unknown]
  - General physical health deterioration [Unknown]
  - Systemic infection [Unknown]
